FAERS Safety Report 11493794 (Version 1)
Quarter: 2015Q3

REPORT INFORMATION
  Report Type: Spontaneous
  Country: US (occurrence: None)
  Receive Date: 20150910
  Receipt Date: 20150910
  Transmission Date: 20151125
  Serious: Yes (Other)
  Sender: FDA-Public Use
  Company Number: None

PATIENT
  Age: 23 Year
  Sex: Male
  Weight: 58.97 kg

DRUGS (9)
  1. ENDOCET [Concomitant]
     Active Substance: ACETAMINOPHEN\OXYCODONE HYDROCHLORIDE
  2. DULCOLACE [Concomitant]
  3. ESCITALOPRAM [Concomitant]
     Active Substance: ESCITALOPRAM OXALATE
  4. DURAGESIC [Concomitant]
     Active Substance: FENTANYL
  5. DICLOFENAC [Concomitant]
     Active Substance: DICLOFENAC
  6. SUMATRIPAN [Concomitant]
  7. FISH OIL [Concomitant]
     Active Substance: FISH OIL
  8. BENADRYL [Concomitant]
     Active Substance: DIPHENHYDRAMINE HYDROCHLORIDE
  9. ENDOCET [Suspect]
     Active Substance: ACETAMINOPHEN\OXYCODONE HYDROCHLORIDE
     Indication: BREAKTHROUGH PAIN
     Route: 048
     Dates: start: 20100325, end: 20150909

REACTIONS (5)
  - Urine output increased [None]
  - Dehydration [None]
  - Insomnia [None]
  - Quality of life decreased [None]
  - Pollakiuria [None]

NARRATIVE: CASE EVENT DATE: 20140424
